FAERS Safety Report 8435775 (Version 3)
Quarter: 2013Q4

REPORT INFORMATION
  Report Type: Report from Study
  Country: US (occurrence: US)
  Receive Date: 20120301
  Receipt Date: 20131029
  Transmission Date: 20140711
  Serious: Yes (Hospitalization, Disabling, Other)
  Sender: FDA-Public Use
  Company Number: PHEH2012US004569

PATIENT
  Age: 19 Year
  Sex: Female
  Weight: 94.8 kg

DRUGS (3)
  1. GILENYA [Suspect]
     Indication: RELAPSING-REMITTING MULTIPLE SCLEROSIS
     Dosage: 0.5 MG, QD
     Route: 048
     Dates: start: 20110701, end: 20120216
  2. VITAMIN D [Concomitant]
     Dosage: 1000 IU, UNK
  3. CALCIUM [Concomitant]

REACTIONS (2)
  - VIIth nerve paralysis [Recovered/Resolved]
  - Lymphocyte count decreased [Unknown]
